FAERS Safety Report 9882508 (Version 2)
Quarter: 2014Q2

REPORT INFORMATION
  Report Type: Spontaneous
  Country: US (occurrence: US)
  Receive Date: 20140207
  Receipt Date: 20140622
  Transmission Date: 20141212
  Serious: Yes (Death, Hospitalization)
  Sender: FDA-Public Use
  Company Number: PHHY2014US011966

PATIENT
  Age: 41 Year
  Sex: Female

DRUGS (6)
  1. CLOMIPRAMINE [Suspect]
  2. CLONAZEPAM [Suspect]
  3. LAMOTRIGINE [Suspect]
  4. ZIPRASIDONE [Suspect]
  5. BENZTROPINE [Suspect]
  6. LITHIUM [Suspect]

REACTIONS (6)
  - Death [Fatal]
  - Acute respiratory failure [Unknown]
  - Neuroleptic malignant syndrome [Unknown]
  - Mental status changes [Unknown]
  - Body temperature increased [Unknown]
  - Agitation [Unknown]
